FAERS Safety Report 5523407-8 (Version None)
Quarter: 2007Q4

REPORT INFORMATION
  Report Type: 
  Country: None (occurrence: None)
  Receive Date: 20071121
  Receipt Date: 20071115
  Transmission Date: 20080405
  Serious: Yes (Hospitalization, Disabling, Other)
  Sender: FDA-Public Use
  Company Number: US-ROCHE-460103

PATIENT
  Age: 20 Year
  Sex: Male
  Weight: 81.6 kg

DRUGS (2)
  1. ACCUTANE [Suspect]
     Indication: ACNE
     Route: 048
     Dates: start: 19971121, end: 19980421
  2. ACCUTANE [Suspect]
     Route: 048

REACTIONS (25)
  - ALCOHOLISM [None]
  - ANXIETY [None]
  - CARDIAC MURMUR [None]
  - CHEST PAIN [None]
  - CHRONIC FATIGUE SYNDROME [None]
  - DEPRESSION [None]
  - EPICONDYLITIS [None]
  - EPSTEIN-BARR VIRUS INFECTION [None]
  - FRACTURE NONUNION [None]
  - GASTROOESOPHAGEAL REFLUX DISEASE [None]
  - HYPERTENSION [None]
  - IMPAIRED HEALING [None]
  - INFECTIOUS MONONUCLEOSIS [None]
  - INSOMNIA [None]
  - INTESTINAL HAEMORRHAGE [None]
  - JUVENILE ARTHRITIS [None]
  - MALIGNANT MELANOMA [None]
  - OSTEOARTHRITIS [None]
  - OSTEOMYELITIS [None]
  - PEPTIC ULCER [None]
  - PYREXIA [None]
  - RHEUMATIC FEVER [None]
  - RHEUMATOID ARTHRITIS [None]
  - SLEEP APNOEA SYNDROME [None]
  - SUICIDAL IDEATION [None]
